FAERS Safety Report 5082629-3 (Version None)
Quarter: 2006Q3

REPORT INFORMATION
  Report Type: 
  Country: None (occurrence: None)
  Receive Date: 20060817
  Receipt Date: 20060601
  Transmission Date: 20061208
  Serious: Yes (Hospitalization)
  Sender: FDA-Public Use
  Company Number: 2006UW11546

PATIENT
  Age: 78 Year
  Sex: Female
  Weight: 53.2 kg

DRUGS (10)
  1. CRESTOR [Suspect]
     Indication: LOW DENSITY LIPOPROTEIN INCREASED
     Route: 048
     Dates: start: 20060513, end: 20060528
  2. BENICAR HCT [Concomitant]
     Dosage: 40/12.5 MG
     Route: 048
     Dates: start: 20060210
  3. BENICAR HCT [Concomitant]
     Dosage: 20/12.5 MG
     Route: 048
     Dates: start: 20060601
  4. CELEBREX [Concomitant]
  5. MULTI-VITAMIN [Concomitant]
  6. CALCIUM GLUCONATE [Concomitant]
  7. ASPIRIN [Concomitant]
  8. DULCOLAX [Concomitant]
  9. METOPROLOL [Concomitant]
  10. GLUCOSAMINE W/CHONDROITIN [Concomitant]

REACTIONS (13)
  - ACUTE CORONARY SYNDROME [None]
  - ANXIETY [None]
  - BLOOD CREATINE PHOSPHOKINASE INCREASED [None]
  - BLOOD CREATININE INCREASED [None]
  - BLOOD PRESSURE INCREASED [None]
  - DEHYDRATION [None]
  - DELIRIUM [None]
  - FEELING COLD [None]
  - HYPERTENSION [None]
  - MYALGIA [None]
  - PSYCHOTIC DISORDER [None]
  - RENAL FAILURE [None]
  - TROPONIN INCREASED [None]
